FAERS Safety Report 6071614-0 (Version None)
Quarter: 2009Q1

REPORT INFORMATION
  Report Type: 
  Country: None (occurrence: None)
  Receive Date: 20090209
  Receipt Date: 20090209
  Transmission Date: 20090719
  Serious: No
  Sender: FDA-Public Use
  Company Number: None

PATIENT
  Age: 67 Year
  Sex: Female
  Weight: 45.3597 kg

DRUGS (2)
  1. LEVAQUIN [Suspect]
     Indication: RHINITIS
     Dosage: 1 PILL - 12-31-08 1 PILL - 01-01-09 } BOTH AT 6PM MOUTH
     Route: 048
     Dates: start: 20081231
  2. LEVAQUIN [Suspect]
     Indication: RHINITIS
     Dosage: 1 PILL - 12-31-08 1 PILL - 01-01-09 } BOTH AT 6PM MOUTH
     Route: 048
     Dates: start: 20090101

REACTIONS (3)
  - HYPOAESTHESIA [None]
  - PARAESTHESIA [None]
  - PRURITUS [None]
